FAERS Safety Report 9252633 (Version 2)
Quarter: 2013Q2

REPORT INFORMATION
  Report Type: Spontaneous
  Country: US (occurrence: US)
  Receive Date: 20130424
  Receipt Date: 20130510
  Transmission Date: 20140414
  Serious: Yes (Other)
  Sender: FDA-Public Use
  Company Number: US-GLAXOSMITHKLINE-A1020351A

PATIENT
  Age: 53 Year
  Sex: Female
  Weight: 90.9 kg

DRUGS (6)
  1. VALACYCLOVIR [Suspect]
     Indication: PROPHYLAXIS
     Dosage: 1G THREE TIMES PER DAY
     Route: 048
     Dates: start: 20130411, end: 20130416
  2. TRAMADOL [Concomitant]
     Indication: PAIN
     Dosage: 50MG AS REQUIRED
  3. LOSARTAN [Concomitant]
     Dosage: 50MG PER DAY
  4. MULTIVITAMIN [Concomitant]
  5. VITAMIN B12 [Concomitant]
     Dosage: 1000MCG PER DAY
  6. VITAMIN D [Concomitant]
     Dosage: 50000IU WEEKLY

REACTIONS (1)
  - Vaginal haemorrhage [Recovered/Resolved]
